FAERS Safety Report 7537190-8 (Version None)
Quarter: 2011Q2

REPORT INFORMATION
  Report Type: 
  Country: None (occurrence: None)
  Receive Date: 20110524
  Receipt Date: 20110415
  Transmission Date: 20111010
  Serious: No
  Sender: FDA-Public Use
  Company Number: 031631

PATIENT
  Weight: 79.4 kg

DRUGS (1)
  1. CIMZIA [Suspect]
     Indication: CROHN'S DISEASE
     Dosage: 400MG 1X/4 WEEKS SUBCUTANEOUS
     Route: 058
     Dates: start: 20081205

REACTIONS (2)
  - DISCOMFORT [None]
  - CROHN'S DISEASE [None]
